FAERS Safety Report 18861143 (Version 2)
Quarter: 2021Q1

REPORT INFORMATION
  Report Type: Report from Study
  Country: HK (occurrence: HK)
  Receive Date: 20210208
  Receipt Date: 20210305
  Transmission Date: 20210420
  Serious: Yes (Hospitalization, Other)
  Sender: FDA-Public Use
  Company Number: HK-EMD SERONO-E2B_90082148

PATIENT
  Age: 78 Year
  Sex: Female

DRUGS (17)
  1. LIGNOCAINE                         /00033401/ [Concomitant]
     Active Substance: LIDOCAINE HYDROCHLORIDE
     Indication: ANAL ULCER
     Route: 051
     Dates: start: 20210112
  2. AMLODIPINE [Concomitant]
     Active Substance: AMLODIPINE BESYLATE
     Indication: HYPERTENSION
     Route: 048
     Dates: start: 20120614
  3. AXITINIB [Suspect]
     Active Substance: AXITINIB
     Route: 048
     Dates: start: 20201112, end: 20201113
  4. AXITINIB [Suspect]
     Active Substance: AXITINIB
     Route: 048
     Dates: start: 20201216, end: 20210118
  5. ETORICOXIB. [Concomitant]
     Active Substance: ETORICOXIB
     Indication: PAIN
     Route: 048
     Dates: start: 20200709
  6. PARACETAMOL [Concomitant]
     Active Substance: ACETAMINOPHEN
     Indication: PREMEDICATION
     Route: 048
     Dates: start: 20201022
  7. SUCRALFATE. [Concomitant]
     Active Substance: SUCRALFATE
     Indication: RECTAL HAEMORRHAGE
     Route: 051
     Dates: start: 20201221
  8. AXITINIB [Suspect]
     Active Substance: AXITINIB
     Dosage: 3
     Route: 048
     Dates: start: 20201119, end: 20201203
  9. GABAPENTIN. [Concomitant]
     Active Substance: GABAPENTIN
     Indication: PAIN
     Route: 048
     Dates: start: 20201113
  10. AVELUMAB [Suspect]
     Active Substance: AVELUMAB
     Indication: CERVIX CARCINOMA
     Dosage: CYCLIC (Q2W, C1D15 WAS SKIPPED)
     Route: 042
     Dates: start: 20201022, end: 20201119
  11. SIMVASTATIN. [Concomitant]
     Active Substance: SIMVASTATIN
     Indication: HYPERLIPIDAEMIA
     Route: 048
     Dates: start: 20201028
  12. AXITINIB [Suspect]
     Active Substance: AXITINIB
     Route: 048
     Dates: start: 20210201, end: 20210217
  13. PARACETAMOL [Concomitant]
     Active Substance: ACETAMINOPHEN
     Indication: PAIN
     Route: 048
     Dates: start: 20201023
  14. DIPHENHYDRAMINE. [Concomitant]
     Active Substance: DIPHENHYDRAMINE
     Indication: PREMEDICATION
     Route: 042
     Dates: start: 20201022
  15. FAMOTIDINE. [Concomitant]
     Active Substance: FAMOTIDINE
     Indication: EPIGASTRIC DISCOMFORT
     Route: 048
     Dates: start: 20200529
  16. AXITINIB [Suspect]
     Active Substance: AXITINIB
     Indication: CERVIX CARCINOMA
     Route: 048
     Dates: start: 20201022, end: 20201103
  17. AVELUMAB [Suspect]
     Active Substance: AVELUMAB
     Route: 042
     Dates: start: 20201217

REACTIONS (2)
  - Rectal haemorrhage [Recovered/Resolved]
  - Anaemia [Recovered/Resolved]

NARRATIVE: CASE EVENT DATE: 20210116
